FAERS Safety Report 10225112 (Version 1)
Quarter: 2014Q2

REPORT INFORMATION
  Report Type: Spontaneous
  Country: US (occurrence: US)
  Receive Date: 20140609
  Receipt Date: 20140609
  Transmission Date: 20141212
  Serious: No
  Sender: FDA-Public Use
  Company Number: US-ASTRAZENECA-2014SE36744

PATIENT
  Age: 60 Year
  Sex: Female

DRUGS (9)
  1. ENTOCORT EC [Suspect]
     Indication: CROHN^S DISEASE
     Route: 048
     Dates: start: 20131209
  2. ENTOCORT EC [Suspect]
     Indication: CROHN^S DISEASE
     Route: 048
     Dates: start: 201312
  3. HUMIRA [Suspect]
     Indication: CROHN^S DISEASE
     Route: 065
     Dates: start: 20131107, end: 20131107
  4. HUMIRA [Suspect]
     Indication: CROHN^S DISEASE
     Route: 065
     Dates: start: 20131121, end: 20131121
  5. HUMIRA [Suspect]
     Indication: CROHN^S DISEASE
     Route: 065
     Dates: start: 20131205
  6. ENSURE [Concomitant]
  7. CALCIUM/MAGNESIUM/ZINC [Concomitant]
  8. FISH OIL [Concomitant]
  9. MULTIVITAMIN [Concomitant]

REACTIONS (19)
  - Feeling hot [Unknown]
  - Chills [Unknown]
  - Fatigue [Unknown]
  - Injection site erythema [Unknown]
  - Injection site pruritus [Unknown]
  - Pyrexia [Unknown]
  - Nausea [Unknown]
  - Pain in extremity [Unknown]
  - Influenza like illness [Unknown]
  - Injection site warmth [Unknown]
  - Diarrhoea [Unknown]
  - Abdominal pain [Unknown]
  - Pelvic pain [Unknown]
  - Myalgia [Unknown]
  - Crohn^s disease [Unknown]
  - Food intolerance [Unknown]
  - Injection site swelling [Unknown]
  - Muscular weakness [Unknown]
  - Injection site bruising [Unknown]
